FAERS Safety Report 5002118-1 (Version None)
Quarter: 2006Q2

REPORT INFORMATION
  Report Type: 
  Country: None (occurrence: None)
  Receive Date: 20060515
  Receipt Date: 20060504
  Transmission Date: 20061013
  Serious: Yes (Hospitalization)
  Sender: FDA-Public Use
  Company Number: CG-MERCK-0605USA01674

PATIENT
  Age: 34 Year
  Sex: Male
  Weight: 53 kg

DRUGS (1)
  1. STROMECTOL [Suspect]
     Route: 048
     Dates: start: 20060310, end: 20060310

REACTIONS (4)
  - ABNORMAL BEHAVIOUR [None]
  - ASTHENIA [None]
  - CONJUNCTIVAL HAEMORRHAGE [None]
  - DEPRESSED LEVEL OF CONSCIOUSNESS [None]
